FAERS Safety Report 10952922 (Version 2)
Quarter: 2015Q2

REPORT INFORMATION
  Report Type: Report from Study
  Country: US (occurrence: US)
  Receive Date: 20150325
  Receipt Date: 20150506
  Transmission Date: 20150821
  Serious: Yes (Other)
  Sender: FDA-Public Use
  Company Number: US-SA-2015SA034802

PATIENT
  Age: 61 Year
  Sex: Male
  Weight: 113.39 kg

DRUGS (2)
  1. AUBAGIO [Suspect]
     Active Substance: TERIFLUNOMIDE
     Indication: MULTIPLE SCLEROSIS
     Route: 048
     Dates: start: 20141101
  2. COPAXONE [Concomitant]
     Active Substance: GLATIRAMER ACETATE
     Indication: MULTIPLE SCLEROSIS
     Dates: start: 20130101, end: 20141031

REACTIONS (6)
  - Cyst [Not Recovered/Not Resolved]
  - Endodontic procedure [Unknown]
  - Pain [Unknown]
  - Retinal tear [Recovered/Resolved]
  - Synovial disorder [Unknown]
  - Hypoaesthesia [Unknown]

NARRATIVE: CASE EVENT DATE: 201501
